FAERS Safety Report 8683116 (Version 3)
Quarter: 2012Q4

REPORT INFORMATION
  Report Type: 
  Country: US (occurrence: US)
  Receive Date: 20120725
  Receipt Date: 20121026
  Transmission Date: 20130627
  Serious: Yes (Other)
  Sender: FDA-Public Use
  Company Number: PHEH2012US013388

PATIENT
  Age: 31 Year
  Sex: Female
  Weight: 52.61 kg

DRUGS (2)
  1. GILENYA [Suspect]
     Indication: MULTIPLE SCLEROSIS
     Dosage: 0.5 mg, QD
     Route: 048
     Dates: start: 20111229
  2. GILENYA [Suspect]
     Dosage: 0.5 mg, QOD
     Route: 048

REACTIONS (10)
  - Central nervous system lesion [Unknown]
  - Dyskinesia [Unknown]
  - Pain in extremity [Unknown]
  - Muscle spasms [Unknown]
  - Tremor [Unknown]
  - Disturbance in attention [Unknown]
  - Dizziness [Unknown]
  - Back pain [Unknown]
  - Paraesthesia [Unknown]
  - Inappropriate schedule of drug administration [Unknown]
